FAERS Safety Report 10993756 (Version 2)
Quarter: 2015Q2

REPORT INFORMATION
  Report Type: Report from Study
  Country: PT (occurrence: AR)
  Receive Date: 20150407
  Receipt Date: 20150601
  Transmission Date: 20150821
  Serious: Yes (Hospitalization, Other)
  Sender: FDA-Public Use
  Company Number: AR-BIOGENIDEC-2015BI041854

PATIENT
  Age: 57 Year
  Sex: Male

DRUGS (7)
  1. BACLOFEN. [Concomitant]
     Active Substance: BACLOFEN
     Indication: PRODUCT USED FOR UNKNOWN INDICATION
  2. ANTIBIOTIC THERAPY- TAMSULOSIN 0.4 [Concomitant]
     Indication: PRODUCT USED FOR UNKNOWN INDICATION
     Route: 042
  3. PRULIFLOXACIN [Concomitant]
     Active Substance: PRULIFLOXACIN
     Indication: PRODUCT USED FOR UNKNOWN INDICATION
  4. ANTIBIOTIC THERAPY- IMIPENEM [Concomitant]
     Indication: PRODUCT USED FOR UNKNOWN INDICATION
     Route: 042
  5. SERTRALINE [Concomitant]
     Active Substance: SERTRALINE HYDROCHLORIDE
     Indication: PRODUCT USED FOR UNKNOWN INDICATION
  6. FAMPYRA [Suspect]
     Active Substance: DALFAMPRIDINE
     Indication: GAIT DISTURBANCE
     Route: 048
     Dates: start: 20150312, end: 20150326
  7. INTERFERON BETA 1B [Concomitant]
     Active Substance: INTERFERON BETA

REACTIONS (7)
  - Cystitis [Unknown]
  - Acute kidney injury [Not Recovered/Not Resolved]
  - Systemic inflammatory response syndrome [Not Recovered/Not Resolved]
  - Urinary tract infection [Not Recovered/Not Resolved]
  - Liver function test abnormal [Not Recovered/Not Resolved]
  - Encephalopathy [Unknown]
  - Urinary retention [Unknown]

NARRATIVE: CASE EVENT DATE: 201503
